FAERS Safety Report 5632885-5 (Version None)
Quarter: 2008Q1

REPORT INFORMATION
  Report Type: 
  Country: None (occurrence: None)
  Receive Date: 20080212
  Receipt Date: 20080128
  Transmission Date: 20080703
  Serious: Yes (Hospitalization, Other)
  Sender: FDA-Public Use
  Company Number: A-CH2007-18752

PATIENT
  Age: 27 Year
  Sex: Female

DRUGS (6)
  1. TRACLEER [Suspect]
     Indication: PULMONARY HYPERTENSION
     Dosage: 62.5 MG, BID, ORAL; 125 MG, BID, ORAL;62.5 MG, TID;  31.25 MG, BID
     Route: 048
     Dates: start: 20070207, end: 20070301
  2. TRACLEER [Suspect]
     Indication: PULMONARY HYPERTENSION
     Dosage: 62.5 MG, BID, ORAL; 125 MG, BID, ORAL;62.5 MG, TID;  31.25 MG, BID
     Route: 048
     Dates: start: 20070301, end: 20070401
  3. TRACLEER [Suspect]
     Indication: PULMONARY HYPERTENSION
     Dosage: 62.5 MG, BID, ORAL; 125 MG, BID, ORAL;62.5 MG, TID;  31.25 MG, BID
     Route: 048
     Dates: start: 20070401, end: 20071001
  4. TRACLEER [Suspect]
     Indication: PULMONARY HYPERTENSION
     Dosage: 62.5 MG, BID, ORAL; 125 MG, BID, ORAL;62.5 MG, TID;  31.25 MG, BID
     Route: 048
     Dates: start: 20071101, end: 20071127
  5. MARCUMAR(PHENPIROCOUMON) [Suspect]
  6. L-THYROXINE (LEVOTHYROXINE) [Concomitant]

REACTIONS (2)
  - BLOOD PRESSURE DECREASED [None]
  - HEPATITIS TOXIC [None]
